FAERS Safety Report 7359002-8 (Version None)
Quarter: 2011Q1

REPORT INFORMATION
  Report Type: 
  Country: None (occurrence: None)
  Receive Date: 20110317
  Receipt Date: 20101220
  Transmission Date: 20110831
  Serious: Yes (Other)
  Sender: FDA-Public Use
  Company Number: US-BAYER-201033596NA

PATIENT
  Sex: Female
  Weight: 70.295 kg

DRUGS (4)
  1. NEXIUM [Concomitant]
  2. CYMBALTA [Concomitant]
  3. YASMIN [Suspect]
     Indication: PRODUCT USED FOR UNKNOWN INDICATION
     Route: 048
     Dates: start: 20030701, end: 20061215
  4. IBUPROFEN [Concomitant]
     Dosage: UNK
     Dates: end: 20050322

REACTIONS (2)
  - GALLBLADDER DISORDER [None]
  - BILIARY DYSKINESIA [None]
